FAERS Safety Report 4978083-X (Version None)
Quarter: 2006Q2

REPORT INFORMATION
  Report Type: 
  Country: None (occurrence: None)
  Receive Date: 20060417
  Receipt Date: 20060406
  Transmission Date: 20061013
  Serious: Yes (Death, Hospitalization)
  Sender: FDA-Public Use
  Company Number: 163-20785-06040354

PATIENT
  Age: 59 Year
  Sex: Female

DRUGS (5)
  1. THALOMID [Suspect]
     Indication: LUNG NEOPLASM MALIGNANT
     Dosage: 200 MG, DAILY, ORAL
     Route: 048
     Dates: start: 20060321, end: 20060331
  2. CARBOPLATIN [Suspect]
     Indication: LUNG NEOPLASM MALIGNANT
     Dosage: ONCE EVERY WEEK FOR THREE WEEKS A MONTH
     Dates: start: 20060321, end: 20060331
  3. VINBLASTINE SULFATE [Suspect]
     Indication: LUNG NEOPLASM MALIGNANT
     Dosage: ONCE EVERY WEEK FOR THREE WEEKS A MONTH
     Dates: start: 20060301, end: 20060301
  4. LEUCOVORIN CALCIUM [Suspect]
     Indication: LUNG NEOPLASM MALIGNANT
     Dosage: ONCE EVERY WEEK FOR THREE WEEKS A MONTH
     Dates: start: 20060301, end: 20060301
  5. FLUOROURACIL [Suspect]
     Indication: LUNG NEOPLASM MALIGNANT
     Dosage: ONCE EVERY WEEK FOR THREE WEEKS A MONTH
     Dates: start: 20060301, end: 20060301

REACTIONS (4)
  - CHEMOTHERAPY [None]
  - DRUG TOXICITY [None]
  - SEPSIS [None]
  - WHITE BLOOD CELL COUNT DECREASED [None]
